FAERS Safety Report 19014611 (Version 2)
Quarter: 2021Q2

REPORT INFORMATION
  Report Type: Spontaneous
  Country: FR (occurrence: FR)
  Receive Date: 20210316
  Receipt Date: 20210402
  Transmission Date: 20210717
  Serious: Yes (Death, Congenital Anomaly)
  Sender: FDA-Public Use
  Company Number: FR-MYLANLABS-2021M1015295

PATIENT
  Sex: Male

DRUGS (5)
  1. ELETRIPTAN. [Suspect]
     Active Substance: ELETRIPTAN
     Dosage: 40 MILLIGRAM, QW
     Route: 064
     Dates: start: 20201005, end: 20201215
  2. KETOPROFEN. [Suspect]
     Active Substance: KETOPROFEN
     Indication: MIGRAINE
     Dosage: 100 MILLIGRAM, QW
     Route: 064
     Dates: start: 20200914, end: 20201215
  3. ALMOTRIPTAN. [Suspect]
     Active Substance: ALMOTRIPTAN
     Dosage: 12.5 MILLIGRAM, QW
     Route: 064
     Dates: start: 20200914, end: 20201005
  4. ELETRIPTAN. [Suspect]
     Active Substance: ELETRIPTAN
     Indication: MIGRAINE
     Dosage: 40 MILLIGRAM, QW
     Route: 064
     Dates: start: 20200914, end: 20201215
  5. ALMOTRIPTAN. [Suspect]
     Active Substance: ALMOTRIPTAN
     Indication: MIGRAINE
     Dosage: 12.5 MILLIGRAM, QW
     Route: 064
     Dates: start: 20200914, end: 20201215

REACTIONS (3)
  - Talipes [Fatal]
  - Spina bifida [Fatal]
  - Foetal exposure during pregnancy [Recovered/Resolved]

NARRATIVE: CASE EVENT DATE: 20201215
